FAERS Safety Report 23314549 (Version 1)
Quarter: 2023Q4

REPORT INFORMATION
  Report Type: Spontaneous
  Country: DK (occurrence: DK)
  Receive Date: 20231219
  Receipt Date: 20231219
  Transmission Date: 20240110
  Serious: Yes (Hospitalization, Other)
  Sender: FDA-Public Use
  Company Number: DK-MYLANLABS-2023M1134976

PATIENT
  Age: 7 Decade
  Sex: Male

DRUGS (4)
  1. SPIRONOLACTONE [Suspect]
     Active Substance: SPIRONOLACTONE
     Indication: Cor pulmonale
     Dosage: UNK
     Route: 065
  2. FUROSEMIDE [Suspect]
     Active Substance: FUROSEMIDE
     Indication: Cor pulmonale
     Dosage: 80 MILLIGRAM
     Route: 042
  3. FUROSEMIDE [Suspect]
     Active Substance: FUROSEMIDE
     Dosage: 40 MILLIGRAM, TID
     Route: 042
  4. BENDROFLUMETHIAZIDE [Suspect]
     Active Substance: BENDROFLUMETHIAZIDE
     Indication: Cor pulmonale
     Dosage: UNK
     Route: 065

REACTIONS (4)
  - Haemolysis [Unknown]
  - Somnolence [Unknown]
  - Hypotension [Unknown]
  - Hyperkalaemia [Unknown]
